FAERS Safety Report 11559835 (Version 2)
Quarter: 2015Q4

REPORT INFORMATION
  Report Type: Spontaneous
  Country: US (occurrence: US)
  Receive Date: 20150928
  Receipt Date: 20151014
  Transmission Date: 20160304
  Serious: Yes (Hospitalization, Other)
  Sender: FDA-Public Use
  Company Number: US-BAYER-2015-430156

PATIENT
  Age: 37 Year
  Sex: Female

DRUGS (1)
  1. MIRENA [Suspect]
     Active Substance: LEVONORGESTREL
     Indication: CONTRACEPTION
     Dosage: 20 MCG/24HR, CONT
     Route: 015
     Dates: start: 20110502, end: 20130606

REACTIONS (9)
  - Abdominal pain lower [None]
  - Injury [None]
  - Abasia [None]
  - General physical health deterioration [None]
  - Endometriosis [None]
  - Bladder disorder [None]
  - Device difficult to use [None]
  - Uterine perforation [None]
  - Marital problem [None]

NARRATIVE: CASE EVENT DATE: 201305
